FAERS Safety Report 12693233 (Version 2)
Quarter: 2016Q3

REPORT INFORMATION
  Report Type: Report from Study
  Country: IE (occurrence: IE)
  Receive Date: 20160829
  Receipt Date: 20160902
  Transmission Date: 20161109
  Serious: Yes (Hospitalization)
  Sender: FDA-Public Use
  Company Number: IE-BRISTOL-MYERS SQUIBB COMPANY-BMS-2016-068444

PATIENT
  Age: 79 Year
  Sex: Male
  Weight: 99.1 kg

DRUGS (17)
  1. NIVOLUMAB [Suspect]
     Active Substance: NIVOLUMAB
     Dosage: 280 MG, UNK
     Route: 065
     Dates: start: 20160725, end: 20160725
  2. NIVOLUMAB [Suspect]
     Active Substance: NIVOLUMAB
     Dosage: 270 MG, UNK
     Route: 065
     Dates: start: 20160125, end: 20160125
  3. NIVOLUMAB [Suspect]
     Active Substance: NIVOLUMAB
     Dosage: 270 MG, UNK
     Route: 065
     Dates: start: 20160222, end: 20160222
  4. NIVOLUMAB [Suspect]
     Active Substance: NIVOLUMAB
     Dosage: 280 MG, UNK
     Route: 065
     Dates: start: 20160503, end: 20160503
  5. NIVOLUMAB [Suspect]
     Active Substance: NIVOLUMAB
     Indication: MALIGNANT MELANOMA
     Dosage: 300 MG, UNK
     Route: 065
     Dates: start: 20151207, end: 20151207
  6. NIVOLUMAB [Suspect]
     Active Substance: NIVOLUMAB
     Dosage: 280 MG, UNK
     Route: 065
     Dates: start: 20160404, end: 20160404
  7. NIVOLUMAB [Suspect]
     Active Substance: NIVOLUMAB
     Dosage: 280 MG, UNK
     Route: 065
     Dates: start: 20160627, end: 20160727
  8. NIVOLUMAB [Suspect]
     Active Substance: NIVOLUMAB
     Dosage: 280 MG, UNK
     Route: 065
     Dates: start: 20160418, end: 20160418
  9. NIVOLUMAB [Suspect]
     Active Substance: NIVOLUMAB
     Dosage: 270 MG, UNK
     Route: 065
     Dates: start: 20160111, end: 20160111
  10. NIVOLUMAB [Suspect]
     Active Substance: NIVOLUMAB
     Dosage: 280 MG, UNK
     Route: 065
     Dates: start: 20160321, end: 20160321
  11. NIVOLUMAB [Suspect]
     Active Substance: NIVOLUMAB
     Dosage: 280 MG, UNK
     Route: 065
     Dates: start: 20160516, end: 20160516
  12. NIVOLUMAB [Suspect]
     Active Substance: NIVOLUMAB
     Dosage: 280 MG, UNK
     Route: 065
     Dates: start: 20160613, end: 20160613
  13. NIVOLUMAB [Suspect]
     Active Substance: NIVOLUMAB
     Dosage: 300 MG, UNK
     Route: 065
     Dates: start: 20151221, end: 20151221
  14. NIVOLUMAB [Suspect]
     Active Substance: NIVOLUMAB
     Dosage: 270 MG, UNK
     Route: 065
     Dates: start: 20160208, end: 20160208
  15. NIVOLUMAB [Suspect]
     Active Substance: NIVOLUMAB
     Dosage: 280 MG, UNK
     Route: 065
     Dates: start: 20160711, end: 20160711
  16. NIVOLUMAB [Suspect]
     Active Substance: NIVOLUMAB
     Dosage: 280 MG, UNK
     Route: 065
     Dates: start: 20160307, end: 20160307
  17. NIVOLUMAB [Suspect]
     Active Substance: NIVOLUMAB
     Dosage: 280 MG, UNK
     Route: 065
     Dates: start: 20160530, end: 20160530

REACTIONS (1)
  - Constipation [Not Recovered/Not Resolved]

NARRATIVE: CASE EVENT DATE: 20160808
